FAERS Safety Report 8606882-1 (Version None)
Quarter: 2012Q3

REPORT INFORMATION
  Report Type: 
  Country: None (occurrence: None)
  Receive Date: 20120820
  Receipt Date: 20120813
  Transmission Date: 20120928
  Serious: Yes (Hospitalization)
  Sender: FDA-Public Use
  Company Number: CA-JNJFOC-20110302760

PATIENT
  Sex: Male
  Weight: 123.1 kg

DRUGS (2)
  1. STELARA [Suspect]
     Route: 058
     Dates: start: 20090309
  2. STELARA [Suspect]
     Indication: PSORIASIS
     Route: 058
     Dates: start: 20101201

REACTIONS (1)
  - THROMBOTIC THROMBOCYTOPENIC PURPURA [None]
